FAERS Safety Report 7167717-X (Version None)
Quarter: 2010Q4

REPORT INFORMATION
  Report Type: 
  Country: None (occurrence: None)
  Receive Date: 20101216
  Receipt Date: 20100827
  Transmission Date: 20110411
  Serious: No
  Sender: FDA-Public Use
  Company Number: A0878061A

PATIENT
  Age: 66 Year
  Sex: Male

DRUGS (1)
  1. NICOTINE POLACRILEX [Suspect]
     Indication: SMOKING CESSATION THERAPY
     Route: 002
     Dates: start: 20100201, end: 20100601

REACTIONS (3)
  - CHOKING SENSATION [None]
  - COUGH [None]
  - SENSATION OF FOREIGN BODY [None]
